FAERS Safety Report 5810668-0 (Version None)
Quarter: 2008Q3

REPORT INFORMATION
  Report Type: 
  Country: None (occurrence: None)
  Receive Date: 20080715
  Receipt Date: 20080711
  Transmission Date: 20090109
  Serious: Yes (Hospitalization)
  Sender: FDA-Public Use
  Company Number: DE-BOEHRINGER INGELHEIM GMBH, GERMANY-2008-DE-03983DE

PATIENT
  Age: 74 Year
  Sex: Female

DRUGS (8)
  1. AGGRENOX [Suspect]
     Indication: PROPHYLAXIS
     Route: 048
  2. RAMIPRIL [Concomitant]
     Dosage: 2,5/12.5
  3. L-THYROX [Concomitant]
  4. DOMINAL FORTE [Concomitant]
  5. MIRTA [Concomitant]
  6. SIMVASTATIN [Concomitant]
  7. OMEPRAZOLE [Concomitant]
  8. ARLEVERT [Concomitant]

REACTIONS (1)
  - CEREBROVASCULAR ACCIDENT [None]
